FAERS Safety Report 16171273 (Version 1)
Quarter: 2019Q2

REPORT INFORMATION
  Report Type: Spontaneous
  Country: BO (occurrence: BO)
  Receive Date: 20190408
  Receipt Date: 20190408
  Transmission Date: 20190711
  Serious: Yes (Death)
  Sender: FDA-Public Use
  Company Number: BO-TAKEDA-2019TUS020381

PATIENT
  Sex: Male
  Weight: 76 kg

DRUGS (1)
  1. VELCADE [Suspect]
     Active Substance: BORTEZOMIB
     Indication: PLASMA CELL MYELOMA
     Dosage: 3.5 MILLIGRAM
     Route: 065
     Dates: start: 20190226, end: 20190306

REACTIONS (1)
  - Death [Fatal]
